FAERS Safety Report 16717031 (Version 1)
Quarter: 2019Q3

REPORT INFORMATION
  Report Type: Spontaneous
  Country: FR (occurrence: FR)
  Receive Date: 20190819
  Receipt Date: 20190819
  Transmission Date: 20191005
  Serious: Yes (Hospitalization)
  Sender: FDA-Public Use
  Company Number: FR-TEVA-2019-FR-1092575

PATIENT
  Age: 70 Year
  Sex: Male

DRUGS (5)
  1. INNOHEP [Suspect]
     Active Substance: TINZAPARIN SODIUM
     Indication: THROMBOSIS PROPHYLAXIS
     Dosage: 0.6 ML FOR EVERY 1 DAY
     Route: 058
     Dates: start: 20190522, end: 20190708
  2. DIFFU K [Concomitant]
     Active Substance: POTASSIUM CHLORIDE
     Route: 065
  3. OXALIPLATIN. [Suspect]
     Active Substance: OXALIPLATIN
     Indication: PANCREATIC CARCINOMA STAGE IV
     Dosage: 65 MG/M2
     Route: 042
     Dates: start: 20190525
  4. FLUOROURACILE [Suspect]
     Active Substance: FLUOROURACIL
     Indication: PANCREATIC CARCINOMA STAGE IV
     Dosage: 2400 MG/M2
     Route: 042
     Dates: start: 20190525
  5. IRINOTECAN [Suspect]
     Active Substance: IRINOTECAN
     Indication: PANCREATIC CARCINOMA STAGE IV
     Dosage: 180 MG/M2
     Route: 042
     Dates: start: 20190525

REACTIONS (2)
  - Anaemia [Recovering/Resolving]
  - Peritoneal haematoma [Recovering/Resolving]

NARRATIVE: CASE EVENT DATE: 20190708
